FAERS Safety Report 4582601-3 (Version None)
Quarter: 2005Q1

REPORT INFORMATION
  Report Type: 
  Country: None (occurrence: None)
  Receive Date: 20050211
  Receipt Date: 20050211
  Transmission Date: 20050727
  Serious: Yes (Life-Threatening, Hospitalization)
  Sender: FDA-Public Use
  Company Number: None

PATIENT
  Age: 45 Year
  Sex: Male
  Weight: 72.6 kg

DRUGS (15)
  1. MYCOPHENOLATE [Suspect]
     Indication: PROPHYLAXIS AGAINST TRANSPLANT REJECTION
     Dosage: 500 MG BID ORAL
     Route: 048
     Dates: start: 20050205, end: 20050205
  2. CYCLOSPORINE [Suspect]
     Indication: PROPHYLAXIS AGAINST TRANSPLANT REJECTION
     Dosage: 125 MG BID ORAL
     Route: 048
     Dates: start: 20050205, end: 20050205
  3. PREDNISONE [Concomitant]
  4. ASPIRIN [Concomitant]
  5. PANTOPRAZOLE [Concomitant]
  6. TRIMETHOPRIM + SULFAMETHOXAZOLE [Concomitant]
  7. SODIUM BICARBONATE IN PLASTIC CONTAINER [Concomitant]
  8. ATORVASTATIN [Concomitant]
  9. SERTRALINE HCL [Concomitant]
  10. LORAZEPAM [Concomitant]
  11. ERYTHROMYCIN [Concomitant]
  12. IRON [Concomitant]
  13. INSULIN [Concomitant]
  14. CYCLOBENZAPRINE [Concomitant]
  15. AMBIEN [Concomitant]

REACTIONS (4)
  - HERPES ZOSTER [None]
  - REFUSAL OF TREATMENT BY PATIENT [None]
  - RENAL FAILURE [None]
  - TRANSPLANT FAILURE [None]
